FAERS Safety Report 13355444 (Version 4)
Quarter: 2017Q2

REPORT INFORMATION
  Report Type: Spontaneous
  Country: FR (occurrence: FR)
  Receive Date: 20170321
  Receipt Date: 20170406
  Transmission Date: 20170830
  Serious: Yes (Hospitalization)
  Sender: FDA-Public Use
  Company Number: FR-PFIZER INC-2017112296

PATIENT
  Age: 84 Year
  Sex: Male

DRUGS (11)
  1. KARDEGIC [Concomitant]
     Active Substance: ASPIRIN LYSINE
     Dosage: 75 MG, DAILY
     Route: 048
     Dates: end: 20161027
  2. FLECAINE LP [Concomitant]
     Active Substance: FLECAINIDE
     Dosage: 1 DF, 1X/DAY
     Route: 048
     Dates: end: 20161028
  3. PRADAXA [Concomitant]
     Active Substance: DABIGATRAN ETEXILATE MESYLATE
     Dosage: 2 DF, DAILY
     Route: 048
     Dates: end: 20161027
  4. EFFEXOR LP [Suspect]
     Active Substance: VENLAFAXINE HYDROCHLORIDE
     Indication: DEPRESSION
     Dosage: 1 DF, 1X/DAY
     Route: 048
     Dates: end: 201611
  5. SINEMET [Suspect]
     Active Substance: CARBIDOPA\LEVODOPA
     Indication: PARKINSON^S DISEASE
     Dosage: 3 DF, DAILY
     Route: 048
     Dates: end: 201611
  6. SERESTA [Concomitant]
     Active Substance: OXAZEPAM
     Dosage: 2 DF, DAILY
     Route: 048
  7. MELAXOSE [Concomitant]
     Active Substance: LACTULOSE\PARAFFIN
     Dosage: 3 DF, DAILY, MORNING
     Route: 048
     Dates: end: 201611
  8. AVLOCARDYL /00030001/ [Concomitant]
     Active Substance: PROPRANOLOL HYDROCHLORIDE
     Dosage: UNK
     Route: 048
     Dates: end: 20161018
  9. AZILECT [Suspect]
     Active Substance: RASAGILINE MESYLATE
     Indication: PARKINSON^S DISEASE
     Dosage: 1 DF, DAILY
     Route: 048
     Dates: start: 20121112, end: 20161105
  10. IXPRIM [Suspect]
     Active Substance: ACETAMINOPHEN\TRAMADOL HYDROCHLORIDE
     Indication: PAIN
     Dosage: 3 DF, AS NEEDED
     Route: 048
     Dates: end: 201611
  11. PANTOPRAZOLE [Concomitant]
     Active Substance: PANTOPRAZOLE
     Dosage: 40 MG, 1X/DAY
     Route: 048

REACTIONS (3)
  - Dysphagia [Recovered/Resolved]
  - Condition aggravated [Recovered/Resolved]
  - Pneumonia aspiration [Recovered/Resolved]

NARRATIVE: CASE EVENT DATE: 201610
